FAERS Safety Report 13266321 (Version 2)
Quarter: 2017Q1

REPORT INFORMATION
  Report Type: Report from Study
  Country: CA (occurrence: CA)
  Receive Date: 20170223
  Receipt Date: 20170309
  Transmission Date: 20170428
  Serious: Yes (Other)
  Sender: FDA-Public Use
  Company Number: PHHY2017CA026607

PATIENT
  Age: 25 Year
  Sex: Female

DRUGS (3)
  1. GILENYA [Suspect]
     Active Substance: FINGOLIMOD HYDROCHLORIDE
     Indication: RELAPSING-REMITTING MULTIPLE SCLEROSIS
     Dosage: 0.5 MG, QD
     Route: 048
     Dates: start: 20170216
  2. NYSTATIN. [Concomitant]
     Active Substance: NYSTATIN
     Indication: PRODUCT USED FOR UNKNOWN INDICATION
     Dosage: UNK UNK, QID FOR 10 DAYS
     Route: 048
     Dates: start: 20170212
  3. BUPROPION. [Concomitant]
     Active Substance: BUPROPION
     Indication: PRODUCT USED FOR UNKNOWN INDICATION
     Dosage: 150 MG, QD
     Route: 065

REACTIONS (6)
  - Sinus bradycardia [Unknown]
  - Blood pressure fluctuation [Unknown]
  - Ventricular extrasystoles [Unknown]
  - Fatigue [Unknown]
  - Sinus arrhythmia [Recovered/Resolved]
  - Sinus rhythm [Unknown]

NARRATIVE: CASE EVENT DATE: 20170216
